FAERS Safety Report 5525095-3 (Version None)
Quarter: 2007Q4

REPORT INFORMATION
  Report Type: 
  Country: None (occurrence: None)
  Receive Date: 20071119
  Receipt Date: 20071119
  Transmission Date: 20080405
  Serious: Yes (Life-Threatening, Hospitalization)
  Sender: FDA-Public Use
  Company Number: None

PATIENT
  Age: 74 Year
  Sex: Female

DRUGS (15)
  1. WARFARIN SODIUM [Suspect]
     Indication: ATRIAL FIBRILLATION
     Dosage: DAILY PO
     Route: 048
  2. TRAMADOL HCL [Concomitant]
  3. TRAZODONE HCL [Concomitant]
  4. VYTORIN [Concomitant]
  5. M.V.I. [Concomitant]
  6. LORAZEPAM [Concomitant]
  7. CELEBREX [Concomitant]
  8. CLONIDINE [Concomitant]
  9. CYMBALTA [Concomitant]
  10. DILTIAZEM [Concomitant]
  11. FOSINOPRIL SODIUM [Concomitant]
  12. ISMN [Concomitant]
  13. POTASSIUM CHLORIDE [Concomitant]
  14. TORSEMIDE [Concomitant]
  15. BOSENTAN [Concomitant]

REACTIONS (2)
  - COAGULOPATHY [None]
  - INTRAVENTRICULAR HAEMORRHAGE [None]
